FAERS Safety Report 5616415-X (Version None)
Quarter: 2008Q1

REPORT INFORMATION
  Report Type: 
  Country: None (occurrence: None)
  Receive Date: 20080207
  Receipt Date: 20070904
  Transmission Date: 20080703
  Serious: No
  Sender: FDA-Public Use
  Company Number: A0678421A

PATIENT
  Age: 16 Year
  Sex: Male

DRUGS (1)
  1. PAXIL [Suspect]
     Dosage: 10ML TWICE PER DAY
     Route: 048
     Dates: start: 20070101

REACTIONS (2)
  - DRUG EFFECT DECREASED [None]
  - WEIGHT INCREASED [None]
